FAERS Safety Report 7142224-9 (Version None)
Quarter: 2010Q4

REPORT INFORMATION
  Report Type: 
  Country: None (occurrence: None)
  Receive Date: 20101207
  Receipt Date: 20101126
  Transmission Date: 20110411
  Serious: Yes (Other)
  Sender: FDA-Public Use
  Company Number: DE-JNJFOC-20101200498

PATIENT
  Age: 11 Year
  Sex: Female
  Weight: 29.2 kg

DRUGS (2)
  1. REMICADE [Suspect]
     Indication: CROHN'S DISEASE
     Dosage: 150 MG
     Route: 042
  2. AZATHIOPRIN [Concomitant]

REACTIONS (1)
  - ARTHROPATHY [None]
